FAERS Safety Report 6868356-8 (Version None)
Quarter: 2010Q3

REPORT INFORMATION
  Report Type: 
  Country: None (occurrence: None)
  Receive Date: 20100722
  Receipt Date: 20080530
  Transmission Date: 20110219
  Serious: No
  Sender: FDA-Public Use
  Company Number: US-PFIZER INC-2008044613

PATIENT
  Sex: Female
  Weight: 74.84 kg

DRUGS (1)
  1. CHANTIX [Suspect]
     Indication: SMOKING CESSATION THERAPY
     Route: 048
     Dates: start: 20080519, end: 20080521

REACTIONS (4)
  - AGITATION [None]
  - ANXIETY [None]
  - MALAISE [None]
  - NAUSEA [None]
